FAERS Safety Report 13872759 (Version 1)
Quarter: 2017Q3

REPORT INFORMATION
  Report Type: Spontaneous
  Country: GB (occurrence: GB)
  Receive Date: 20170814
  Receipt Date: 20170814
  Transmission Date: 20171127
  Serious: Yes (Other)
  Sender: FDA-Public Use
  Company Number: None

PATIENT
  Age: 80 Year
  Sex: Female
  Weight: 57 kg

DRUGS (1)
  1. INFLIXIMAB [Suspect]
     Active Substance: INFLIXIMAB

REACTIONS (6)
  - Nausea [None]
  - Kidney infection [None]
  - Vomiting [None]
  - Malaise [None]
  - Hypophagia [None]
  - Weight decreased [None]

NARRATIVE: CASE EVENT DATE: 20170801
